FAERS Safety Report 8091038-4 (Version None)
Quarter: 2012Q1

REPORT INFORMATION
  Report Type: 
  Country: None (occurrence: None)
  Receive Date: 20120128
  Receipt Date: 20110730
  Transmission Date: 20120608
  Serious: No
  Sender: FDA-Public Use
  Company Number: US-ABBOTT-11P-163-0843050-00

PATIENT
  Age: 21 Year
  Sex: Female

DRUGS (5)
  1. JOLESSA BIRTH CONTROL PILLS [Concomitant]
     Indication: PRODUCT USED FOR UNKNOWN INDICATION
  2. HUMIRA [Suspect]
     Indication: CROHN'S DISEASE
     Dates: start: 20101130
  3. ENTOCORT EC [Concomitant]
     Indication: CROHN'S DISEASE
  4. TRAMADOL HCL [Concomitant]
     Indication: PAIN
  5. APRISO [Concomitant]
     Indication: CROHN'S DISEASE
     Dosage: FOUR CAPSULES DAILY

REACTIONS (3)
  - INJECTION SITE PRURITUS [None]
  - INJECTION SITE ERYTHEMA [None]
  - INJECTION SITE NODULE [None]
